FAERS Safety Report 6328830-X (Version None)
Quarter: 2009Q3

REPORT INFORMATION
  Report Type: 
  Country: None (occurrence: None)
  Receive Date: 20090826
  Receipt Date: 20090821
  Transmission Date: 20100115
  Serious: Yes (Hospitalization)
  Sender: FDA-Public Use
  Company Number: CA-BRISTOL-MYERS SQUIBB COMPANY-14750988

PATIENT
  Age: 64 Year
  Sex: Male
  Weight: 80 kg

DRUGS (15)
  1. CISPLATIN [Suspect]
     Indication: NON-SMALL CELL LUNG CANCER
     Dosage: 29JUN-03JUL09. 20JUL09-ONGOING. LAST DOSE GIVEN ON 24JUL09.
     Route: 042
     Dates: start: 20090629
  2. ALIMTA [Suspect]
     Indication: NON-SMALL CELL LUNG CANCER
     Dosage: LAST DOSE GIVEN ON 20JUL09.
     Route: 042
     Dates: start: 20090629
  3. RADIATION THERAPY [Suspect]
     Indication: NON-SMALL CELL LUNG CANCER
     Dosage: LAST DOSE GIVEN ON 24JUL09
     Route: 065
     Dates: start: 20090101
  4. RAMIPRIL [Concomitant]
     Dosage: FORM: CAPSULE.
  5. CRESTOR [Concomitant]
  6. METOPROLOL [Concomitant]
     Dosage: FORM: TABLET.
  7. ASPIRIN [Concomitant]
  8. LORAZEPAM [Concomitant]
  9. ADVAIR DISKUS 100/50 [Concomitant]
  10. FOLIC ACID [Concomitant]
     Dates: start: 20090618
  11. VITAMIN B-12 [Concomitant]
     Dates: start: 20090618
  12. KYTRIL [Concomitant]
     Dates: start: 20090704, end: 20090724
  13. RANITIDINE [Concomitant]
     Dates: start: 20090702
  14. CODEINE PHOSPHATE [Concomitant]
     Dates: start: 20090715
  15. SULCRATE [Concomitant]
     Dates: start: 20090715

REACTIONS (3)
  - DEHYDRATION [None]
  - HYPOTENSION [None]
  - NEUTROPENIA [None]
